FAERS Safety Report 5652912-9 (Version None)
Quarter: 2008Q1

REPORT INFORMATION
  Report Type: 
  Country: None (occurrence: None)
  Receive Date: 20080306
  Receipt Date: 20080220
  Transmission Date: 20080703
  Serious: Yes (Other)
  Sender: FDA-Public Use
  Company Number: US-BAYER-200810766BCC

PATIENT
  Sex: Male

DRUGS (4)
  1. ORIGINAL ALKA SELTZER EFFERVESCENT [Suspect]
     Indication: NASOPHARYNGITIS
     Route: 048
     Dates: start: 20080219
  2. THERAFLU [Suspect]
     Indication: DRUG USE FOR UNKNOWN INDICATION
     Dates: start: 20080219
  3. TYLENOL DECONGESTION [Suspect]
     Indication: DRUG USE FOR UNKNOWN INDICATION
     Dates: start: 20080219
  4. NYQUIL [Suspect]
     Indication: DRUG USE FOR UNKNOWN INDICATION
     Dates: start: 20080219

REACTIONS (5)
  - ASTHENIA [None]
  - EPISTAXIS [None]
  - FATIGUE [None]
  - HAEMOPTYSIS [None]
  - SELF INJURIOUS BEHAVIOUR [None]
